FAERS Safety Report 5910382-7 (Version None)
Quarter: 2008Q4

REPORT INFORMATION
  Report Type: 
  Country: None (occurrence: None)
  Receive Date: 20081007
  Receipt Date: 20080110
  Transmission Date: 20090506
  Serious: No
  Sender: FDA-Public Use
  Company Number: US-ASTRAZENECA-2008UW00728

PATIENT
  Age: 56 Year
  Sex: Female
  Weight: 59 kg

DRUGS (4)
  1. ARIMIDEX [Suspect]
     Route: 048
     Dates: start: 20070701
  2. VICODIN [Concomitant]
     Dosage: AS NEEDED
  3. NAPROXEN [Concomitant]
  4. FOSAMAX [Concomitant]

REACTIONS (2)
  - CANDIDIASIS [None]
  - JOINT STIFFNESS [None]
